FAERS Safety Report 4871479-6 (Version None)
Quarter: 2005Q4

REPORT INFORMATION
  Report Type: 
  Country: None (occurrence: None)
  Receive Date: 20051229
  Receipt Date: 20051220
  Transmission Date: 20060501
  Serious: Yes (Hospitalization)
  Sender: FDA-Public Use
  Company Number: TPA2005A01098

PATIENT
  Age: 72 Year
  Sex: Male

DRUGS (12)
  1. ACTOS [Suspect]
     Indication: DIABETES MELLITUS NON-INSULIN-DEPENDENT
     Dosage: PER ORAL
     Route: 048
     Dates: start: 19990101, end: 20050624
  2. UNKNOWN BLOOD PRESSURE MEDICATION (ANTIHYPERTENSIVES) [Concomitant]
  3. UNKNOWN LIPID MEDICATION (SERUMLIPIDREDUCING AGENTS) [Concomitant]
  4. PROTONIX (PANTOPRAZOLE) (40 MILLIGRAM) [Concomitant]
  5. LACTULOSE [Concomitant]
  6. LASIX (FUROSEMIDE) (40 MILLIGRAM) [Concomitant]
  7. INSULIN 70/30 (INSULIN) (80 IU (INTERNATIONAL UNIT)) [Concomitant]
  8. ALDACTONE (SPIRONOLACTONE) (25 MILLIGRAM) [Concomitant]
  9. VITAMIN C (ASCORBIC ACID) (500 MILLIGRAM) [Concomitant]
  10. VITAMIN D (ERGOCALCIFEROL) (800 IU (INTERNATIONAL UNIT)) [Concomitant]
  11. NIFEREX (POLYSACCHARIDE-IRON COMPLEX) (150 MILLIGRAM) [Concomitant]
  12. GRANULEX (GRANULEX) (SPRAY (NOT INHALATION)) [Concomitant]

REACTIONS (22)
  - ANAEMIA [None]
  - BACTERIA URINE IDENTIFIED [None]
  - BLOOD CREATININE INCREASED [None]
  - BLOOD GLUCOSE INCREASED [None]
  - BLOOD PRESSURE DIASTOLIC DECREASED [None]
  - BLOOD TEST ABNORMAL [None]
  - BLOOD UREA INCREASED [None]
  - ELECTROCARDIOGRAM ST-T CHANGE [None]
  - GASTROINTESTINAL HAEMORRHAGE [None]
  - LETHARGY [None]
  - LYMPHOCYTE PERCENTAGE DECREASED [None]
  - MENTAL STATUS CHANGES [None]
  - NEUTROPHIL PERCENTAGE INCREASED [None]
  - PLATELET COUNT DECREASED [None]
  - PNEUMONIA [None]
  - RALES [None]
  - SEPSIS [None]
  - SINUS TACHYCARDIA [None]
  - SKIN IRRITATION [None]
  - SKIN LACERATION [None]
  - WHITE BLOOD CELL COUNT DECREASED [None]
  - WHITE BLOOD CELL COUNT INCREASED [None]
